FAERS Safety Report 18980435 (Version 1)
Quarter: 2021Q1

REPORT INFORMATION
  Report Type: Spontaneous
  Country: US (occurrence: US)
  Receive Date: 20210307
  Receipt Date: 20210307
  Transmission Date: 20210420
  Serious: Yes (Other)
  Sender: FDA-Public Use
  Company Number: None

PATIENT
  Age: 59 Year
  Sex: Female
  Weight: 58.5 kg

DRUGS (10)
  1. MONTELUKAST [Concomitant]
     Active Substance: MONTELUKAST SODIUM
  2. LATANOPROST. [Concomitant]
     Active Substance: LATANOPROST
  3. FISH OIL [Concomitant]
     Active Substance: FISH OIL
  4. MULTIVITAMIN [Concomitant]
     Active Substance: VITAMINS
  5. PROBIOTIC [Concomitant]
     Active Substance: PROBIOTICS NOS
  6. CVS HEALTH EXTRA STRENGTH ACETAMINOPHEN CAPLETS 500 MG [Suspect]
     Active Substance: ACETAMINOPHEN
     Indication: BACK PAIN
     Dosage: ?          QUANTITY:100 CAPLETS;?
     Dates: start: 20210228, end: 20210228
  7. VITAMIN D [Concomitant]
     Active Substance: VITAMIN D NOS
  8. FAMOTIDINE. [Concomitant]
     Active Substance: FAMOTIDINE
  9. DESLORATADINE. [Concomitant]
     Active Substance: DESLORATADINE
  10. FLONASE [Concomitant]
     Active Substance: FLUTICASONE PROPIONATE

REACTIONS (1)
  - Dermatitis allergic [None]

NARRATIVE: CASE EVENT DATE: 20210301
